FAERS Safety Report 18904206 (Version 2)
Quarter: 2021Q1

REPORT INFORMATION
  Report Type: Report from Study
  Country: GB (occurrence: GB)
  Receive Date: 20210217
  Receipt Date: 20210223
  Transmission Date: 20210420
  Serious: Yes (Life-Threatening)
  Sender: FDA-Public Use
  Company Number: GB-ROCHE-2771390

PATIENT
  Age: 76 Year

DRUGS (2)
  1. TOCILIZUMAB. [Suspect]
     Active Substance: TOCILIZUMAB
     Indication: COVID-19
  2. TOCILIZUMAB. [Suspect]
     Active Substance: TOCILIZUMAB
     Indication: PNEUMONIA
     Dosage: TOCILIZUMAB GIVEN ON 05/NOV/2020 AND 06/NOV/2020?TOCILIZUMAB WILL BE ADMINISTERED AS A SINGLE DOSE O
     Route: 042

REACTIONS (1)
  - Neutropenic sepsis [Recovered/Resolved]
